FAERS Safety Report 9104148 (Version 1)
Quarter: 2013Q1

REPORT INFORMATION
  Report Type: Report from Study
  Country: US (occurrence: US)
  Receive Date: 20130219
  Receipt Date: 20130219
  Transmission Date: 20140127
  Serious: Yes (Death)
  Sender: FDA-Public Use
  Company Number: US-ROCHE-1142560

PATIENT
  Sex: Female

DRUGS (2)
  1. CAPECITABINE [Suspect]
     Indication: BREAST CANCER METASTATIC
     Route: 048
     Dates: start: 201209
  2. CAPECITABINE [Suspect]
     Route: 048
     Dates: start: 20121007, end: 201301

REACTIONS (3)
  - Metastases to liver [Fatal]
  - Infection [Unknown]
  - Body temperature increased [Unknown]
